FAERS Safety Report 14385621 (Version 1)
Quarter: 2018Q1

REPORT INFORMATION
  Report Type: Spontaneous
  Country: US (occurrence: US)
  Receive Date: 20180115
  Receipt Date: 20180115
  Transmission Date: 20180509
  Serious: Yes (Other)
  Sender: FDA-Public Use
  Company Number: US-SA-2017SA005300

PATIENT
  Age: 55 Year
  Sex: Female
  Weight: 58.96 kg

DRUGS (8)
  1. ADRIAMYCIN [Concomitant]
     Active Substance: DOXORUBICIN HYDROCHLORIDE
  2. HERCEPTIN [Concomitant]
     Active Substance: TRASTUZUMAB
     Route: 042
  3. HERCEPTIN [Concomitant]
     Active Substance: TRASTUZUMAB
     Route: 042
  4. CREMOPHOR EL [Concomitant]
     Active Substance: POLYOXYL 35 CASTOR OIL
  5. NEOSAR [Concomitant]
     Active Substance: CYCLOPHOSPHAMIDE
  6. TAXOTERE [Suspect]
     Active Substance: DOCETAXEL
     Indication: INVASIVE DUCTAL BREAST CARCINOMA
     Route: 042
     Dates: start: 20130509, end: 20130509
  7. TAXOTERE [Suspect]
     Active Substance: DOCETAXEL
     Indication: INVASIVE DUCTAL BREAST CARCINOMA
     Route: 042
     Dates: start: 20130801, end: 20130801
  8. ABRAXANE [Concomitant]
     Active Substance: PACLITAXEL

REACTIONS (5)
  - Emotional distress [Unknown]
  - Anxiety [Unknown]
  - Alopecia [Not Recovered/Not Resolved]
  - Impaired quality of life [Unknown]
  - Pain [Unknown]

NARRATIVE: CASE EVENT DATE: 2013
